FAERS Safety Report 16014786 (Version 1)
Quarter: 2019Q1

REPORT INFORMATION
  Report Type: Spontaneous
  Country: US (occurrence: US)
  Receive Date: 20190227
  Receipt Date: 20190227
  Transmission Date: 20190418
  Serious: Yes (Other)
  Sender: FDA-Public Use
  Company Number: PHEH2019US008194

PATIENT
  Sex: Female

DRUGS (2)
  1. VALSARTAN. [Suspect]
     Active Substance: VALSARTAN
     Indication: BREAST CANCER
     Dosage: 125 MG, QD
     Route: 048
  2. VALSARTAN. [Suspect]
     Active Substance: VALSARTAN
     Dosage: 100 MG, UNK
     Route: 048
     Dates: start: 2016

REACTIONS (12)
  - Constipation [Unknown]
  - Malaise [Unknown]
  - Platelet count abnormal [Unknown]
  - Abdominal pain [Unknown]
  - Rotator cuff syndrome [Unknown]
  - Haemoglobin abnormal [Unknown]
  - Nausea [Unknown]
  - White blood cell count decreased [Unknown]
  - Hypotension [Unknown]
  - Fatigue [Unknown]
  - Decreased appetite [Unknown]
  - Thrombosis [Unknown]

NARRATIVE: CASE EVENT DATE: 201805
